FAERS Safety Report 5465053-0 (Version None)
Quarter: 2007Q3

REPORT INFORMATION
  Report Type: 
  Country: None (occurrence: None)
  Receive Date: 20070820
  Receipt Date: 20070515
  Transmission Date: 20080115
  Serious: No
  Sender: FDA-Public Use
  Company Number: TPA2007A01077

PATIENT
  Age: 32 Year
  Sex: Male
  Weight: 71.2147 kg

DRUGS (1)
  1. ROZEREM [Suspect]
     Dosage: PER ORAL
     Route: 048
     Dates: start: 20070326

REACTIONS (1)
  - DRUG INEFFECTIVE [None]
